FAERS Safety Report 15939435 (Version 1)
Quarter: 2019Q1

REPORT INFORMATION
  Report Type: Spontaneous
  Country: SE (occurrence: SE)
  Receive Date: 20190208
  Receipt Date: 20190208
  Transmission Date: 20190417
  Serious: Yes (Hospitalization)
  Sender: FDA-Public Use
  Company Number: SE-MYLANLABS-2019M1011222

PATIENT
  Age: 62 Year
  Sex: Male

DRUGS (7)
  1. METFORMIN [Suspect]
     Active Substance: METFORMIN HYDROCHLORIDE
     Indication: TYPE 2 DIABETES MELLITUS
     Dosage: 500 MG 1X2
     Route: 048
     Dates: end: 201806
  2. LOSARTAN. [Concomitant]
     Active Substance: LOSARTAN
  3. TROMBYL [Concomitant]
     Active Substance: ASPIRIN
  4. JARDIANCE [Concomitant]
     Active Substance: EMPAGLIFLOZIN
     Dosage: 10 MG 1X1
     Route: 048
     Dates: end: 201806
  5. NOVORAPID [Concomitant]
     Active Substance: INSULIN ASPART
  6. GABAPENTIN. [Concomitant]
     Active Substance: GABAPENTIN
  7. LANTUS [Concomitant]
     Active Substance: INSULIN GLARGINE

REACTIONS (1)
  - Acute kidney injury [Recovered/Resolved]

NARRATIVE: CASE EVENT DATE: 20180618
